FAERS Safety Report 6067001-1 (Version None)
Quarter: 2009Q1

REPORT INFORMATION
  Report Type: 
  Country: None (occurrence: None)
  Receive Date: 20090205
  Receipt Date: 20090128
  Transmission Date: 20090719
  Serious: Yes (Hospitalization, Other)
  Sender: FDA-Public Use
  Company Number: US-JNJFOC-20090200009

PATIENT
  Sex: Male
  Weight: 89.81 kg

DRUGS (1)
  1. DURAGESIC-100 [Suspect]
     Indication: BACK PAIN
     Dosage: 100+100 UG/HR
     Route: 062

REACTIONS (12)
  - ABDOMINAL ADHESIONS [None]
  - ANXIETY [None]
  - BLOOD PRESSURE INCREASED [None]
  - FRACTURE [None]
  - GASTRIC DISORDER [None]
  - HYPERHIDROSIS [None]
  - INCORRECT DRUG ADMINISTRATION DURATION [None]
  - MALABSORPTION [None]
  - PYREXIA [None]
  - SPINAL FRACTURE [None]
  - ULCER [None]
  - WEIGHT FLUCTUATION [None]
